FAERS Safety Report 12905834 (Version 3)
Quarter: 2016Q4

REPORT INFORMATION
  Report Type: Spontaneous
  Country: DE (occurrence: DE)
  Receive Date: 20161103
  Receipt Date: 20161220
  Transmission Date: 20170207
  Serious: Yes (Hospitalization)
  Sender: FDA-Public Use
  Company Number: DE-SUN PHARMACEUTICAL INDUSTRIES LTD-2016RR-126865

PATIENT
  Age: 63 Year
  Sex: Male
  Weight: 125 kg

DRUGS (4)
  1. BEVACIZUMAB [Concomitant]
     Active Substance: BEVACIZUMAB
     Indication: RECTAL CANCER
     Dosage: 625 MG
     Route: 042
  2. OXALIPLATIN SUN 5 MG/ML CONCENTRATE FOR SOLUTION FOR INFUSION [Suspect]
     Active Substance: OXALIPLATIN
     Indication: RECTAL CANCER
     Dosage: 187 MG, UNK
     Route: 042
  3. GRANISETRON [Concomitant]
     Active Substance: GRANISETRON
     Indication: PRODUCT USED FOR UNKNOWN INDICATION
     Dosage: UNK
     Route: 042
  4. DEXAMETHASONE. [Concomitant]
     Active Substance: DEXAMETHASONE
     Indication: PRODUCT USED FOR UNKNOWN INDICATION
     Dosage: UNK
     Route: 042

REACTIONS (6)
  - Erythema [Not Recovered/Not Resolved]
  - Blood pressure decreased [Not Recovered/Not Resolved]
  - Cold sweat [Not Recovered/Not Resolved]
  - Abdominal pain upper [Not Recovered/Not Resolved]
  - Nausea [Not Recovered/Not Resolved]
  - Syncope [Not Recovered/Not Resolved]

NARRATIVE: CASE EVENT DATE: 20161010
